FAERS Safety Report 10444759 (Version 4)
Quarter: 2015Q1

REPORT INFORMATION
  Report Type: Spontaneous
  Country: US (occurrence: US)
  Receive Date: 20140910
  Receipt Date: 20150225
  Transmission Date: 20150720
  Serious: Yes (Hospitalization, Other)
  Sender: FDA-Public Use
  Company Number: US-009507513-1409USA004497

PATIENT
  Sex: Female
  Weight: 62.13 kg

DRUGS (1)
  1. JANUMET [Suspect]
     Active Substance: METFORMIN HYDROCHLORIDE\SITAGLIPTIN PHOSPHATE
     Indication: TYPE 2 DIABETES MELLITUS
     Dosage: 50/500 MG QD
     Route: 048
     Dates: start: 20080605, end: 20131022

REACTIONS (17)
  - Pancreaticoduodenectomy [Recovering/Resolving]
  - Blood cholesterol increased [Unknown]
  - Thrombocytopenia [Unknown]
  - Cholecystectomy [Unknown]
  - Neutropenia [Unknown]
  - Hypertension [Unknown]
  - Lung infiltration [Unknown]
  - Rotator cuff repair [Unknown]
  - Neuropathy peripheral [Unknown]
  - Anaemia [Recovering/Resolving]
  - Hysterectomy [Unknown]
  - Pancreatic carcinoma metastatic [Unknown]
  - Pyrexia [Unknown]
  - Metastases to liver [Unknown]
  - Inappropriate schedule of drug administration [Unknown]
  - Shoulder operation [Unknown]
  - Salpingo-oophorectomy bilateral [Unknown]

NARRATIVE: CASE EVENT DATE: 20080605
